FAERS Safety Report 4412822-1 (Version None)
Quarter: 2004Q3

REPORT INFORMATION
  Report Type: 
  Country: None (occurrence: None)
  Receive Date: 20040730
  Receipt Date: 20040730
  Transmission Date: 20050211
  Serious: No
  Sender: FDA-Public Use
  Company Number: None

PATIENT
  Age: 37 Year
  Sex: Female
  Weight: 84.369 kg

DRUGS (8)
  1. WELLBUTRIN SR [Suspect]
     Indication: DEPRESSION
     Dosage: 150 MG QAM ORAL
     Route: 048
     Dates: start: 20040415, end: 20040426
  2. ATENOLOL [Concomitant]
  3. HYDROXYZINE [Concomitant]
  4. RANITIDINE [Concomitant]
  5. VALPROIC ACID [Concomitant]
  6. TYLENOL W/ CODEINE NO. 3 [Concomitant]
  7. MEPERIDINE HCL [Concomitant]
  8. FIORICET [Concomitant]

REACTIONS (3)
  - CONDITION AGGRAVATED [None]
  - MUSCLE SPASMS [None]
  - TREMOR [None]
